FAERS Safety Report 11863171 (Version 2)
Quarter: 2016Q2

REPORT INFORMATION
  Report Type: Spontaneous
  Country: SE (occurrence: SE)
  Receive Date: 20151223
  Receipt Date: 20160526
  Transmission Date: 20160815
  Serious: Yes (Hospitalization)
  Sender: FDA-Public Use
  Company Number: SE-ASTRAZENECA-2015SF28074

PATIENT
  Age: 81 Year
  Sex: Female

DRUGS (21)
  1. WARAN [Concomitant]
     Active Substance: WARFARIN SODIUM
  2. LASIX [Concomitant]
     Active Substance: FUROSEMIDE
  3. OMEPRAZOL [Concomitant]
     Active Substance: OMEPRAZOLE
  4. METOPROLOL. [Concomitant]
     Active Substance: METOPROLOL
  5. ALLOPURINOL. [Concomitant]
     Active Substance: ALLOPURINOL
  6. LAMOTRIGIN [Concomitant]
     Active Substance: LAMOTRIGINE
  7. NITROGLYCERIN. [Concomitant]
     Active Substance: NITROGLYCERIN
     Route: 060
  8. ATORVASTATIN [Concomitant]
     Active Substance: ATORVASTATIN
  9. LOCOBASE [Concomitant]
     Dosage: 200 MG/G+45 MG/G
  10. DIAZEPAM. [Concomitant]
     Active Substance: DIAZEPAM
     Route: 054
  11. OXASCAND [Concomitant]
     Active Substance: OXAZEPAM
  12. NIFEREX [Concomitant]
     Active Substance: IRON\POLYSACCHARIDES
  13. ALVEDON [Concomitant]
     Active Substance: ACETAMINOPHEN
  14. EKLIRA GENUAIR [Suspect]
     Active Substance: ACLIDINIUM BROMIDE
     Indication: PULMONARY FIBROSIS
     Route: 055
     Dates: start: 20151106, end: 20151125
  15. LEVAXIN [Concomitant]
     Active Substance: LEVOTHYROXINE SODIUM
  16. ABSENOR [Concomitant]
  17. VOLTAREN [Concomitant]
     Active Substance: DICLOFENAC SODIUM
  18. STESOLID NOVUM [Concomitant]
  19. AMIAS [Concomitant]
     Active Substance: CANDESARTAN CILEXETIL
  20. SIFROL [Concomitant]
     Active Substance: PRAMIPEXOLE
  21. CITALOPRAM [Concomitant]
     Active Substance: CITALOPRAM HYDROBROMIDE

REACTIONS (6)
  - Product use issue [Recovered/Resolved]
  - Urinary retention [Not Recovered/Not Resolved]
  - Acute kidney injury [Not Recovered/Not Resolved]
  - Nausea [Unknown]
  - Off label use [Recovered/Resolved]
  - Tremor [Unknown]

NARRATIVE: CASE EVENT DATE: 20151122
